FAERS Safety Report 15821432 (Version 2)
Quarter: 2019Q1

REPORT INFORMATION
  Report Type: Spontaneous
  Country: NL (occurrence: NL)
  Receive Date: 20190114
  Receipt Date: 20190122
  Transmission Date: 20190417
  Serious: Yes (Death, Other)
  Sender: FDA-Public Use
  Company Number: NL-JNJFOC-20190110974

PATIENT
  Age: 64 Year
  Sex: Female

DRUGS (1)
  1. INFLIXIMAB, RECOMBINANT [Suspect]
     Active Substance: INFLIXIMAB
     Indication: MYELODYSPLASTIC SYNDROME
     Route: 042

REACTIONS (3)
  - Mucormycosis [Fatal]
  - Product use in unapproved indication [Unknown]
  - Off label use [Unknown]
